FAERS Safety Report 24553252 (Version 2)
Quarter: 2024Q4

REPORT INFORMATION
  Report Type: Spontaneous
  Country: US (occurrence: US)
  Receive Date: 20241028
  Receipt Date: 20241118
  Transmission Date: 20250114
  Serious: Yes (Hospitalization)
  Sender: STRIDES
  Company Number: US-STRIDES ARCOLAB LIMITED-2024SP013747

PATIENT
  Age: 54 Year
  Sex: Female

DRUGS (4)
  1. METHOTREXATE [Suspect]
     Active Substance: METHOTREXATE
     Indication: Polyarthritis
     Dosage: 15 MILLIGRAM, ONCE A WEEK (TABLET)
     Route: 065
  2. METHOTREXATE [Suspect]
     Active Substance: METHOTREXATE
     Dosage: 15 MILLIGRAM, QD (THREE (3) 2.5 MG TABLETS TWICE A DAY, A TOTAL OF 15 MG DAILY FOR 5 DAYS CONSECUTIV
     Route: 065
  3. MESALAMINE [Concomitant]
     Active Substance: MESALAMINE
     Indication: Product used for unknown indication
     Dosage: UNK
     Route: 065
  4. BUDESONIDE [Concomitant]
     Active Substance: BUDESONIDE
     Indication: Product used for unknown indication
     Dosage: UNK
     Route: 065

REACTIONS (23)
  - Dysphagia [Unknown]
  - Haematochezia [Unknown]
  - Oral pain [Recovered/Resolved]
  - Oropharyngeal pain [Recovered/Resolved]
  - Gait disturbance [Unknown]
  - Electrolyte imbalance [Recovered/Resolved]
  - Accidental overdose [Unknown]
  - Stomatitis [Recovered/Resolved]
  - Malaise [Unknown]
  - Folliculitis [Unknown]
  - Dysarthria [Unknown]
  - Nausea [Unknown]
  - Vomiting [Unknown]
  - Anaemia [Unknown]
  - Thrombocytopenia [Recovered/Resolved]
  - Neutropenia [Recovered/Resolved]
  - Pyrexia [Unknown]
  - Diarrhoea [Unknown]
  - Colitis [Unknown]
  - Asthenia [Recovered/Resolved]
  - Fatigue [Unknown]
  - Mucosal inflammation [Recovered/Resolved]
  - Toxicity to various agents [Unknown]
